FAERS Safety Report 8820648 (Version 3)
Quarter: 2012Q4

REPORT INFORMATION
  Report Type: 
  Country: JP (occurrence: JP)
  Receive Date: 20121002
  Receipt Date: 20121010
  Transmission Date: 20130627
  Serious: No
  Sender: FDA-Public Use
  Company Number: JP-JNJFOC-20121000087

PATIENT
  Age: 70 Year
  Sex: Male

DRUGS (1)
  1. TRAMCET [Suspect]
     Indication: PAIN
     Dosage: 1 dose x 1 per day
     Route: 048
     Dates: end: 20120925

REACTIONS (1)
  - Nausea [Recovered/Resolved]
